FAERS Safety Report 9059355 (Version 1)
Quarter: 2013Q1

REPORT INFORMATION
  Report Type: Spontaneous
  Country: US (occurrence: US)
  Receive Date: 20130211
  Receipt Date: 20130211
  Transmission Date: 20140127
  Serious: No
  Sender: FDA-Public Use
  Company Number: US-ASTRAZENECA-2013SE03630

PATIENT
  Age: 52 Year
  Sex: Female
  Weight: 79.4 kg

DRUGS (3)
  1. SYMBICORT [Suspect]
     Indication: ASTHMA
     Dosage: 160/4.5MCG 2 TWICE A DAY
     Route: 055
     Dates: start: 201212, end: 20130106
  2. SINGULAIR [Concomitant]
     Indication: MULTIPLE ALLERGIES
  3. NASONEX [Concomitant]
     Indication: MULTIPLE ALLERGIES

REACTIONS (2)
  - Glossodynia [Unknown]
  - Oropharyngeal pain [Unknown]
